FAERS Safety Report 6446296-6 (Version None)
Quarter: 2009Q4

REPORT INFORMATION
  Report Type: 
  Country: None (occurrence: None)
  Receive Date: 20091119
  Receipt Date: 20091113
  Transmission Date: 20100525
  Serious: Yes (Death, Hospitalization)
  Sender: FDA-Public Use
  Company Number: DE-CELGENEUS-062-21880-09101273

PATIENT
  Sex: Male
  Weight: 95 kg

DRUGS (2)
  1. REVLIMID [Suspect]
     Indication: MULTIPLE MYELOMA
     Route: 048
     Dates: start: 20090814
  2. REVLIMID [Suspect]
     Route: 048
     Dates: start: 20090112, end: 20090516

REACTIONS (1)
  - MULTIPLE MYELOMA [None]
